FAERS Safety Report 7248561-1 (Version None)
Quarter: 2011Q1

REPORT INFORMATION
  Report Type: 
  Country: None (occurrence: None)
  Receive Date: 20110128
  Receipt Date: 20101122
  Transmission Date: 20110831
  Serious: Yes (Hospitalization)
  Sender: FDA-Public Use
  Company Number: US-BAYER-2010-000208

PATIENT
  Sex: Male
  Weight: 88.435 kg

DRUGS (14)
  1. VENTOLIN [Concomitant]
  2. COUMADIN [Concomitant]
  3. VITAMIN B-12 [Concomitant]
  4. GLIPIZIDE [Concomitant]
  5. ALBUTEROL INHALER [Concomitant]
  6. ASPIRIN [Concomitant]
  7. MARINOL [Concomitant]
  8. PROVENTIL [Concomitant]
  9. POTASSIUM [Concomitant]
  10. ALEVE (CAPLET) [Suspect]
     Indication: PAIN IN EXTREMITY
     Dosage: 440 MG, BID
  11. COLCHICINE [Concomitant]
  12. DILTIAZEM [Concomitant]
     Dosage: UNK
     Dates: end: 20101119
  13. SUDAFED 12 HOUR [Concomitant]
     Indication: DYSPNOEA
     Dosage: 1 DF, QD
  14. LASIX [Concomitant]

REACTIONS (3)
  - DIARRHOEA [None]
  - HEART RATE DECREASED [None]
  - DYSPNOEA [None]
